FAERS Safety Report 20240254 (Version 3)
Quarter: 2022Q2

REPORT INFORMATION
  Report Type: Report from Study
  Country: CA (occurrence: CA)
  Receive Date: 20211228
  Receipt Date: 20220617
  Transmission Date: 20220721
  Serious: Yes (Death)
  Sender: FDA-Public Use
  Company Number: CA-PFIZER INC-202101856193

PATIENT
  Age: 80 Year
  Sex: Female
  Weight: 65 kg

DRUGS (45)
  1. XELJANZ [Suspect]
     Active Substance: TOFACITINIB CITRATE
     Dosage: 5 MG, 2X/DAY (BID)
     Dates: start: 20190411, end: 20210112
  2. METHOTREXATE SODIUM [Suspect]
     Active Substance: METHOTREXATE SODIUM
     Dosage: 20 MG, WEEKLY
     Dates: start: 20181213, end: 20210112
  3. SYNTHROID [Concomitant]
     Active Substance: LEVOTHYROXINE SODIUM
     Indication: Prophylaxis
     Dosage: UNK
     Route: 048
     Dates: start: 20181213, end: 20210112
  4. SYNTHROID [Concomitant]
     Active Substance: LEVOTHYROXINE SODIUM
     Dosage: 50 MG 1 DOSE
     Dates: start: 20210128, end: 20210128
  5. AZACITIDINE [Concomitant]
     Active Substance: AZACITIDINE
     Dosage: 119 MG, DAILY FOR 7 DAYS ON DAYS 1 TO 5 + 8 TO 9 GIVE ON WEEKDAYS ONLY EVERY 28 DAYS
     Dates: start: 20210210
  6. ONDANSETRON [Concomitant]
     Active Substance: ONDANSETRON
     Indication: Premedication
     Dosage: 8 MG (PRIOR TO EACH DOSE OF AZACITIDINE)
     Route: 048
  7. ONDANSETRON [Concomitant]
     Active Substance: ONDANSETRON
     Dosage: 8 MG (PRIOR TO EACH DOSE OF AZACITIDINE)
     Route: 042
  8. CEFTRIAXONE [Concomitant]
     Active Substance: CEFTRIAXONE
     Dosage: 2000 MG, (EVERY 24 HOURS)
     Route: 042
     Dates: start: 20210126
  9. AZITHROMYCIN [Concomitant]
     Active Substance: AZITHROMYCIN
     Dosage: 500 MG (EVERY 24 HOURS)
     Route: 042
     Dates: start: 20210126
  10. AZITHROMYCIN [Concomitant]
     Active Substance: AZITHROMYCIN
     Dosage: 500 MG EVERY 24 HOURS
     Route: 042
     Dates: start: 20210127, end: 20210128
  11. AZITHROMYCIN [Concomitant]
     Active Substance: AZITHROMYCIN
     Dosage: 500 MG 1 DOSE
     Route: 042
     Dates: start: 20210128, end: 20210128
  12. ACETAMINOPHEN [Concomitant]
     Active Substance: ACETAMINOPHEN
     Dosage: 1000 MG (EVEY 6 HOURS AS NEEDED)
     Route: 048
     Dates: start: 20210126
  13. ACETAMINOPHEN [Concomitant]
     Active Substance: ACETAMINOPHEN
     Dosage: 1000 MG 1X DOSE
     Route: 048
     Dates: start: 20210211, end: 20210211
  14. ACETAMINOPHEN [Concomitant]
     Active Substance: ACETAMINOPHEN
     Dosage: 650 MG 1 DOSE
     Route: 048
     Dates: start: 20210201, end: 20210201
  15. VANCOMYCIN [Concomitant]
     Active Substance: VANCOMYCIN
     Dosage: 1000 MG, EVERY 12 HOURS
     Route: 042
     Dates: start: 20210127
  16. VANCOMYCIN [Concomitant]
     Active Substance: VANCOMYCIN
     Dosage: 1000 MG, X1 DOSE
     Route: 042
     Dates: start: 20210212, end: 20210212
  17. VANCOMYCIN [Concomitant]
     Active Substance: VANCOMYCIN
     Dosage: 1 DOSE PRE 4TH DOSE
     Dates: start: 20210128, end: 20210128
  18. ENSURE MAX PROTEIN [Concomitant]
     Dosage: 60 ML, 4X/DAY
     Route: 048
     Dates: start: 20210201
  19. ENSURE MAX PROTEIN [Concomitant]
     Dosage: 90 ML, 4X/DAY
     Route: 048
  20. MEROPENEM [Concomitant]
     Active Substance: MEROPENEM
     Indication: Pyrexia
     Dosage: 1000 MG EVERY 8 HOURS
     Route: 042
     Dates: start: 20210202
  21. PIPERACILLIN SODIUM\TAZOBACTAM SODIUM [Concomitant]
     Active Substance: PIPERACILLIN SODIUM\TAZOBACTAM SODIUM
     Dosage: 4.5 G EVERY 6 HOURS
     Dates: start: 20210126
  22. FUROSEMIDE [Concomitant]
     Active Substance: FUROSEMIDE
     Dosage: 20 MG X1 DOSE
     Route: 042
     Dates: start: 20210203, end: 20210203
  23. FUROSEMIDE [Concomitant]
     Active Substance: FUROSEMIDE
     Dosage: 20 MG X1 DOSE BEFORE PACKED RED BLOOD CELLS (PRBCS)
     Route: 042
     Dates: start: 20210204, end: 20210204
  24. FUROSEMIDE [Concomitant]
     Active Substance: FUROSEMIDE
     Dosage: 20 MG X1 DOSE
     Route: 042
     Dates: start: 20210206, end: 20210206
  25. FUROSEMIDE [Concomitant]
     Active Substance: FUROSEMIDE
     Dosage: 20 MG X1 DOSE
     Route: 042
     Dates: start: 20210208, end: 20210208
  26. FUROSEMIDE [Concomitant]
     Active Substance: FUROSEMIDE
     Dosage: 20 MG X1 DOSE (30 MINUTES BEFORE TRANSFUSION)
     Route: 042
     Dates: start: 20210209, end: 20210209
  27. DORZOLAMIDE HYDROCHLORIDE\TIMOLOL MALEATE [Concomitant]
     Active Substance: DORZOLAMIDE HYDROCHLORIDE\TIMOLOL MALEATE
     Dosage: 1 DF (DROP) 2X DAY
     Route: 047
     Dates: start: 20210203
  28. PREDNISOLONE ACETATE [Concomitant]
     Active Substance: PREDNISOLONE ACETATE
     Dosage: 1 DF (DROP), 2X/DAY
     Route: 047
     Dates: start: 20210126, end: 20210208
  29. HUMAN RED BLOOD CELL [Concomitant]
     Active Substance: HUMAN RED BLOOD CELL
     Dosage: X1 DOSE
     Route: 042
     Dates: start: 20210204, end: 20210204
  30. SPIRONOLACTONE [Concomitant]
     Active Substance: SPIRONOLACTONE
     Dosage: 12.5 MG, 1X/DAY
     Route: 048
     Dates: start: 20210206
  31. CLOTRIMAZOLE [Concomitant]
     Active Substance: CLOTRIMAZOLE
     Indication: Rash
     Dosage: UNK
  32. VORICONAZOLE [Concomitant]
     Active Substance: VORICONAZOLE
     Dosage: 200 MG EVERY 12 HOURS (START WITH 6MG/KG FOR 2 DOSES, THEN STEP DOWN TO 4 MG/KG)
     Route: 042
     Dates: start: 20210203
  33. CLOTRIMAZOLE [Concomitant]
     Active Substance: CLOTRIMAZOLE
     Dosage: APPLY 2X/DAY UNDER BREAST FOR 7 DAYS
     Route: 061
     Dates: start: 20210204, end: 20210211
  34. TRIAMCINOLONE [Concomitant]
     Active Substance: TRIAMCINOLONE
     Dosage: X1 DOSE APPLY 2XDAY ON BACK , BUTTOCK AND POSTERIOS THIGHS
     Dates: start: 20210210, end: 20210210
  35. TRIAMCINOLONE [Concomitant]
     Active Substance: TRIAMCINOLONE
     Dosage: APPLY 2XDAY ON BACK , BUTTOCK AND POSTERIOS THIGHS
     Dates: start: 20210210, end: 20210220
  36. VALACYCLOVIR HYDROCHLORIDE [Concomitant]
     Active Substance: VALACYCLOVIR HYDROCHLORIDE
     Dosage: 500 MG EVEY 12 HOURS
     Route: 048
     Dates: start: 20210211
  37. HYDROCORTISONE [Concomitant]
     Active Substance: HYDROCORTISONE
     Dosage: 50 MG X1 DOSE
     Route: 042
     Dates: start: 20210212, end: 20210212
  38. HYDROCORTISONE [Concomitant]
     Active Substance: HYDROCORTISONE
     Dosage: 100 MG EVERY 8 HOURS
     Route: 042
     Dates: start: 20210213
  39. LACTATED RINGERS SOLUTION [Concomitant]
     Active Substance: CALCIUM CHLORIDE\POTASSIUM CHLORIDE\SODIUM CHLORIDE\SODIUM LACTATE
     Dosage: 1000 ML X1 DOSE
     Route: 042
     Dates: start: 20210212, end: 20210212
  40. GENTAMICIN [Concomitant]
     Active Substance: GENTAMICIN
     Dosage: 80 MG EVERY 8 HOURS
     Route: 042
     Dates: start: 20210213
  41. SODIUM CHLORIDE [Concomitant]
     Active Substance: SODIUM CHLORIDE
     Dosage: 500 ML X1 DOSE
     Route: 042
     Dates: start: 20210213, end: 20210213
  42. HYDROXYCHLOROQUINE [Concomitant]
     Active Substance: HYDROXYCHLOROQUINE
     Dosage: UNK
     Dates: end: 20210112
  43. FOLIC ACID [Concomitant]
     Active Substance: FOLIC ACID
     Dosage: UNK
     Dates: end: 20210112
  44. PANTOPRAZOLE SODIUM [Concomitant]
     Active Substance: PANTOPRAZOLE SODIUM
     Dosage: UNK
     Dates: end: 20210112
  45. TYLENOL [Concomitant]
     Active Substance: ACETAMINOPHEN
     Dosage: UNK, AS NEEDED

REACTIONS (2)
  - Acute myeloid leukaemia [Fatal]
  - Pneumonia [Fatal]

NARRATIVE: CASE EVENT DATE: 20210127
